FAERS Safety Report 17505828 (Version 1)
Quarter: 2020Q1

REPORT INFORMATION
  Report Type: Spontaneous
  Country: US (occurrence: US)
  Receive Date: 20200306
  Receipt Date: 20200306
  Transmission Date: 20200409
  Serious: No
  Sender: FDA-Public Use
  Company Number: NVSC2020US059122

PATIENT
  Sex: Female

DRUGS (1)
  1. OMNITROPE [Suspect]
     Active Substance: SOMATROPIN
     Indication: PRODUCT USED FOR UNKNOWN INDICATION
     Dosage: 5 MG
     Route: 065

REACTIONS (4)
  - Neoplasm [Unknown]
  - Product leakage [Unknown]
  - Thyroid disorder [Unknown]
  - Accidental exposure to product [Unknown]
